FAERS Safety Report 25627894 (Version 4)
Quarter: 2025Q3

REPORT INFORMATION
  Report Type: Spontaneous
  Country: EU (occurrence: EU)
  Receive Date: 20250731
  Receipt Date: 20250820
  Transmission Date: 20251020
  Serious: Yes (Other)
  Sender: NOVARTIS
  Company Number: EU-002147023-NVSC2025PT113337

PATIENT
  Age: 66 Year
  Sex: Male

DRUGS (5)
  1. ASCIMINIB [Suspect]
     Active Substance: ASCIMINIB
     Indication: Acute lymphocytic leukaemia
     Dosage: 80 MG, QD (40 MG, BID)
     Route: 065
     Dates: start: 20250612
  2. ASCIMINIB [Suspect]
     Active Substance: ASCIMINIB
     Dosage: 160 MG, QD (80 MG, BID (40 MG, BID))
     Route: 065
  3. ASCIMINIB [Suspect]
     Active Substance: ASCIMINIB
     Dosage: 80 MG, QD (40 MG, BID)
     Route: 065
  4. ATORVASTATIN [Suspect]
     Active Substance: ATORVASTATIN
     Indication: Dyslipidaemia
     Route: 065
  5. ATORVASTATIN [Suspect]
     Active Substance: ATORVASTATIN
     Dosage: 40 MG, QD (ONCE PER  DAY)
     Route: 065
     Dates: start: 20250725

REACTIONS (6)
  - Hepatotoxicity [Recovering/Resolving]
  - Aspartate aminotransferase increased [Recovering/Resolving]
  - Alanine aminotransferase abnormal [Recovering/Resolving]
  - Blood alkaline phosphatase abnormal [Recovering/Resolving]
  - Gamma-glutamyltransferase abnormal [Recovering/Resolving]
  - Off label use [Unknown]
